FAERS Safety Report 19098070 (Version 1)
Quarter: 2021Q2

REPORT INFORMATION
  Report Type: Other
  Country: MX (occurrence: MX)
  Receive Date: 20210406
  Receipt Date: 20210406
  Transmission Date: 20210717
  Serious: Yes (Disabling, Other)
  Sender: FDA-Public Use
  Company Number: MX-ROCHE-2805315

PATIENT
  Age: 52 Year
  Sex: Female
  Weight: 85 kg

DRUGS (2)
  1. ROACTEMRA [Suspect]
     Active Substance: TOCILIZUMAB
     Indication: RHEUMATOID ARTHRITIS
     Dosage: 200MG/10ML VIAL
     Route: 042
     Dates: start: 20120103
  2. ROACTEMRA [Suspect]
     Active Substance: TOCILIZUMAB
     Route: 042

REACTIONS (8)
  - Arthritis [Unknown]
  - Discomfort [Unknown]
  - Product dispensing error [Unknown]
  - Headache [Not Recovered/Not Resolved]
  - Influenza [Not Recovered/Not Resolved]
  - Epilepsy [Unknown]
  - Body temperature increased [Unknown]
  - Pain [Unknown]

NARRATIVE: CASE EVENT DATE: 202010
